FAERS Safety Report 8549320-X (Version None)
Quarter: 2012Q3

REPORT INFORMATION
  Report Type: 
  Country: None (occurrence: None)
  Receive Date: 20120730
  Receipt Date: 20120718
  Transmission Date: 20120928
  Serious: Yes (Hospitalization)
  Sender: FDA-Public Use
  Company Number: JP-ELI_LILLY_AND_COMPANY-JP201206000997

PATIENT
  Age: 88 Year
  Sex: Male

DRUGS (2)
  1. FORTEO [Suspect]
     Dosage: UNK
     Route: 058
     Dates: end: 20120701
  2. FORTEO [Suspect]
     Dosage: UNK
     Route: 058
     Dates: start: 20120530, end: 20120601

REACTIONS (5)
  - DECREASED APPETITE [None]
  - HEAT ILLNESS [None]
  - INSOMNIA [None]
  - BLOOD PRESSURE DECREASED [None]
  - NAUSEA [None]
